FAERS Safety Report 8544964-3 (Version None)
Quarter: 2012Q3

REPORT INFORMATION
  Report Type: 
  Country: None (occurrence: None)
  Receive Date: 20120727
  Receipt Date: 20120718
  Transmission Date: 20120928
  Serious: Yes (Hospitalization)
  Sender: FDA-Public Use
  Company Number: JP-VERTEX PHARMACEUTICALS INC.-AE-2012-006989

PATIENT
  Sex: Female

DRUGS (18)
  1. CLOBETASOL PROPIONATE [Concomitant]
  2. DIOVAN [Concomitant]
  3. ADENOSINE [Concomitant]
  4. MECOBALAMIN [Concomitant]
  5. EPEL [Concomitant]
  6. VOLTAREN [Concomitant]
     Dates: start: 20120327
  7. LOXONIN [Concomitant]
     Route: 048
     Dates: start: 20120330, end: 20120510
  8. XYZAL [Concomitant]
  9. PEGASYS [Concomitant]
     Indication: HEPATITIS C
     Route: 051
     Dates: end: 20120511
  10. MERISLON [Concomitant]
  11. VX-950 [Suspect]
     Indication: HEPATITIS C
     Route: 048
     Dates: start: 20120313, end: 20120511
  12. TATHION [Concomitant]
  13. RIBAVIRIN [Concomitant]
     Indication: HEPATITIS C
     Route: 048
     Dates: start: 20120313, end: 20120511
  14. EPINASTINE HYDROCHLORIDE [Concomitant]
  15. NEXIUM [Concomitant]
  16. OLOPATADINE HCL [Concomitant]
  17. ISOSORBIDE DINITRATE [Concomitant]
  18. REBAMIPIDE [Concomitant]

REACTIONS (1)
  - ERYTHEMA MULTIFORME [None]
